FAERS Safety Report 21140826 (Version 4)
Quarter: 2022Q4

REPORT INFORMATION
  Report Type: Spontaneous
  Country: US (occurrence: US)
  Receive Date: 20220728
  Receipt Date: 20221027
  Transmission Date: 20230112
  Serious: No
  Sender: FDA-Public Use
  Company Number: US-AIMMUNE THERAPEUTICS, INC.-2022AIMT00580

PATIENT

DRUGS (3)
  1. PALFORZIA [Suspect]
     Active Substance: PEANUT
     Indication: Food allergy
     Dosage: 6 MG, 1X/DAY
     Route: 048
     Dates: start: 20220712, end: 20220724
  2. PALFORZIA [Suspect]
     Active Substance: PEANUT
     Dosage: 1 MG, 1X/DAY, DOSE DECREASED
     Route: 048
     Dates: start: 20220725, end: 20220729
  3. PALFORZIA [Suspect]
     Active Substance: PEANUT
     Dosage: 2 MG, 1X/DAY, DOSE INCREASED
     Route: 048
     Dates: start: 20220730

REACTIONS (7)
  - Sinusitis [Unknown]
  - Acute sinusitis [Recovered/Resolved]
  - Nasal congestion [Recovered/Resolved]
  - Rhinorrhoea [Recovered/Resolved]
  - Grunting [Unknown]
  - Pharyngeal paraesthesia [Unknown]
  - Cough [Unknown]

NARRATIVE: CASE EVENT DATE: 20220101
